FAERS Safety Report 24122269 (Version 2)
Quarter: 2024Q4

REPORT INFORMATION
  Report Type: Spontaneous
  Country: US (occurrence: US)
  Receive Date: 20240722
  Receipt Date: 20241114
  Transmission Date: 20250115
  Serious: No
  Sender: ROCHE
  Company Number: US-ROCHE-10000031127

PATIENT
  Age: 56 Year
  Sex: Female

DRUGS (1)
  1. ACTEMRA ACTPEN [Suspect]
     Active Substance: TOCILIZUMAB
     Indication: Rheumatoid arthritis
     Route: 058

REACTIONS (12)
  - Arthralgia [Unknown]
  - Back pain [Unknown]
  - Fibromyalgia [Unknown]
  - Fatigue [Unknown]
  - Arthralgia [Unknown]
  - Pain [Unknown]
  - Loss of personal independence in daily activities [Unknown]
  - Back pain [Unknown]
  - Peripheral swelling [Unknown]
  - Dyskinesia [Unknown]
  - Drug ineffective [Unknown]
  - Blood cholesterol increased [Unknown]
